FAERS Safety Report 15243581 (Version 1)
Quarter: 2018Q3

REPORT INFORMATION
  Report Type: Spontaneous
  Country: US (occurrence: US)
  Receive Date: 20180806
  Receipt Date: 20180806
  Transmission Date: 20181010
  Serious: No
  Sender: FDA-Public Use
  Company Number: US-PFIZER INC-2018310826

PATIENT
  Sex: Female

DRUGS (2)
  1. ADVIL [Suspect]
     Active Substance: IBUPROFEN
     Indication: BACK PAIN
     Dosage: UNK (HAD TAKEN A TOTAL OF 7 TABLETS IN TWO DAY)
     Dates: start: 20180730
  2. ADVIL [Suspect]
     Active Substance: IBUPROFEN
     Indication: ANALGESIC THERAPY

REACTIONS (2)
  - Drug prescribing error [Unknown]
  - Drug ineffective [Unknown]
